FAERS Safety Report 9120427 (Version 2)
Quarter: 2013Q2

REPORT INFORMATION
  Report Type: Spontaneous
  Country: US (occurrence: US)
  Receive Date: 20130226
  Receipt Date: 20130617
  Transmission Date: 20140414
  Serious: Yes (Other)
  Sender: FDA-Public Use
  Company Number: US-VERTEX PHARMACEUTICALS INC.-2013-002693

PATIENT
  Age: 57 Year
  Sex: Male
  Weight: 70 kg

DRUGS (9)
  1. INCIVEK [Suspect]
     Indication: HEPATITIS C
     Dosage: 750 MG, TID
     Route: 048
     Dates: start: 20121015, end: 20121217
  2. PEGASYS [Suspect]
     Indication: HEPATITIS C
     Dosage: UNK
     Dates: start: 20120917, end: 20130211
  3. RIBAVIRIN [Suspect]
     Indication: HEPATITIS C
     Dosage: UNK
     Dates: start: 20120917, end: 20130211
  4. MOTRIN [Concomitant]
     Dosage: UNK
  5. INFLUENZA VACCINE [Concomitant]
     Indication: INFLUENZA
     Dosage: UNK
     Dates: start: 20121022
  6. PRILOSEC [Concomitant]
     Dosage: UNK
  7. CHLORHEXIDIN [Concomitant]
     Dosage: UNK
     Dates: start: 20121022
  8. FLUNISOLIDE [Concomitant]
     Dosage: 2 DF, QD, 0.025%
     Dates: start: 20121023
  9. CHLORPHENAMINE [Concomitant]
     Dosage: 4 MG, UNK
     Dates: start: 20121023

REACTIONS (1)
  - Drug reaction with eosinophilia and systemic symptoms [Recovered/Resolved]
